FAERS Safety Report 18513437 (Version 2)
Quarter: 2020Q4

REPORT INFORMATION
  Report Type: Spontaneous
  Country: US (occurrence: US)
  Receive Date: 20201118
  Receipt Date: 20201216
  Transmission Date: 20210114
  Serious: Yes (Death, Hospitalization, Other)
  Sender: FDA-Public Use
  Company Number: US-AMGEN-USASP2020184153

PATIENT
  Age: 67 Year
  Sex: Male
  Weight: 89.34 kg

DRUGS (12)
  1. REPATHA [Suspect]
     Active Substance: EVOLOCUMAB
     Indication: TYPE V HYPERLIPIDAEMIA
     Dosage: 140 MILLIGRAM PER MILLILITRE, Q2WK
     Route: 058
     Dates: start: 20190606
  2. COREG [Concomitant]
     Active Substance: CARVEDILOL
     Dosage: 25 MILLIGRAM, BID
     Dates: start: 20160814, end: 20201108
  3. LASIX [Concomitant]
     Active Substance: FUROSEMIDE
  4. OLMESARTAN [Concomitant]
     Active Substance: OLMESARTAN
  5. PLAVIX [Concomitant]
     Active Substance: CLOPIDOGREL BISULFATE
     Dosage: 75 MILLIGRAM, QOD
     Dates: start: 20171005, end: 20201108
  6. ALOGLIPTIN. [Concomitant]
     Active Substance: ALOGLIPTIN
  7. DIOVAN [Concomitant]
     Active Substance: VALSARTAN
  8. JARDIANCE [Concomitant]
     Active Substance: EMPAGLIFLOZIN
  9. JANUVIA [Concomitant]
     Active Substance: SITAGLIPTIN PHOSPHATE
  10. ALLOPURINOL. [Concomitant]
     Active Substance: ALLOPURINOL
  11. ASPIRIN [ACETYLSALICYLIC ACID] [Concomitant]
     Active Substance: ASPIRIN
     Dosage: 142.5 UNK, QD
     Dates: start: 20170911, end: 20201108
  12. MEXILETINE [Concomitant]
     Active Substance: MEXILETINE

REACTIONS (4)
  - COVID-19 [Fatal]
  - Acute kidney injury [Fatal]
  - Respiratory failure [Fatal]
  - Sepsis [Fatal]

NARRATIVE: CASE EVENT DATE: 20201018
